FAERS Safety Report 20659309 (Version 1)
Quarter: 2022Q1

REPORT INFORMATION
  Report Type: Spontaneous
  Country: US (occurrence: US)
  Receive Date: 20220331
  Receipt Date: 20220331
  Transmission Date: 20220423
  Serious: Yes (Hospitalization)
  Sender: FDA-Public Use
  Company Number: US-GSKCCFUS-Case-01331449_AE-77408

PATIENT
  Sex: Female

DRUGS (1)
  1. BENLYSTA [Suspect]
     Active Substance: BELIMUMAB
     Indication: Product used for unknown indication
     Dosage: UNK
     Route: 058
     Dates: start: 2020

REACTIONS (5)
  - Nerve injury [Recovering/Resolving]
  - Sensory loss [Recovering/Resolving]
  - Intervertebral disc protrusion [Recovering/Resolving]
  - Spinal disorder [Recovering/Resolving]
  - Spinal fusion surgery [Unknown]
